FAERS Safety Report 10269683 (Version 1)
Quarter: 2014Q2

REPORT INFORMATION
  Report Type: Spontaneous
  Country: FR (occurrence: None)
  Receive Date: 20140625
  Receipt Date: 20140625
  Transmission Date: 20141212
  Serious: Yes (Life-Threatening, Other)
  Sender: FDA-Public Use
  Company Number: FK201402427

PATIENT
  Age: 72 Year
  Sex: Male

DRUGS (2)
  1. AMIODARONE HCL (MANUFACTURER UNKNOWN) (AMIODARONE HYDROCHLORIDE) (AMIODARON HYDROCHLORIDE) [Suspect]
     Indication: ATRIAL FIBRILLATION
     Dosage: 200 MG, DAILY, UNKNOWN
  2. DABIGATRAN ETEXILATE (DABIGATRAN ETEXILATE) [Suspect]
     Indication: ATRIAL FIBRILLATION
     Dosage: 150 MG, 2 IN 1 D, UNKNOWN

REACTIONS (5)
  - Epistaxis [None]
  - Respiratory distress [None]
  - Drug interaction [None]
  - Haemoglobin decreased [None]
  - Activated partial thromboplastin time prolonged [None]
